FAERS Safety Report 7445134-2 (Version None)
Quarter: 2011Q2

REPORT INFORMATION
  Report Type: 
  Country: None (occurrence: None)
  Receive Date: 20110429
  Receipt Date: 20110426
  Transmission Date: 20111010
  Serious: Yes (Hospitalization, Other)
  Sender: FDA-Public Use
  Company Number: JP-PFIZER INC-2011010379

PATIENT
  Age: 67 Year
  Sex: Female

DRUGS (10)
  1. NEUROTROPIN [Concomitant]
     Indication: BACK PAIN
     Dosage: 8 DF, 2X/DAY
     Route: 048
     Dates: start: 20100909
  2. TRANSAMIN [Concomitant]
     Indication: CHLOASMA
     Dosage: 250 MG, 3X/DAY
     Route: 048
     Dates: start: 20101202
  3. EPADEL [Concomitant]
     Indication: HYPERLIPIDAEMIA
     Dosage: 600 MG, 3X/DAY
     Route: 048
     Dates: start: 20100909
  4. METHYCOBAL [Concomitant]
     Indication: NEUROPATHY PERIPHERAL
     Dosage: 500 UG, 3X/DAY
     Route: 048
     Dates: start: 20100909
  5. LYRICA [Suspect]
     Indication: NEURALGIA
     Dosage: 75 MG, 1X/DAY
     Route: 048
     Dates: start: 20101111, end: 20101221
  6. CELECOXIB [Concomitant]
     Indication: BACK PAIN
     Dosage: 100 MG, 2X/DAY
     Route: 048
     Dates: start: 20100909
  7. VESICARE [Concomitant]
     Indication: HYPERTONIC BLADDER
     Dosage: 2.5 MG, 1X/DAY
     Route: 048
     Dates: start: 20100909
  8. MARZULENE S [Concomitant]
     Indication: GASTRITIS
     Dosage: 0.67 G, 3X/DAY
     Route: 048
     Dates: start: 20100909
  9. ACTONEL [Concomitant]
     Indication: OSTEOPOROSIS
     Dosage: 17.5 MG, WEEKLY
     Route: 048
     Dates: start: 20100909
  10. CINAL [Concomitant]
     Indication: CHLOASMA
     Dosage: 1 DF, 3X/DAY
     Route: 048
     Dates: start: 20101202

REACTIONS (1)
  - HEPATITIS ACUTE [None]
